FAERS Safety Report 8542312-6 (Version None)
Quarter: 2012Q3

REPORT INFORMATION
  Report Type: 
  Country: None (occurrence: None)
  Receive Date: 20120726
  Receipt Date: 20120502
  Transmission Date: 20120928
  Serious: No
  Sender: FDA-Public Use
  Company Number: US-ASTRAZENECA-2010SE44239

PATIENT
  Age: 32 Year
  Sex: Female
  Weight: 81.6 kg

DRUGS (27)
  1. PROMETHAZINE [Concomitant]
     Indication: NAUSEA
  2. SEROQUEL [Suspect]
     Indication: MOOD SWINGS
     Route: 048
     Dates: start: 20070101, end: 20100825
  3. PROVAIR INHALER [Concomitant]
     Dosage: PRN
     Route: 055
  4. ATENOLOL [Concomitant]
     Indication: BLOOD PRESSURE ABNORMAL
     Dosage: DAILY
     Route: 048
  5. ATENOLOL [Concomitant]
     Indication: HEADACHE
     Dosage: DAILY
     Route: 048
  6. SEROQUEL [Suspect]
     Indication: INSOMNIA
     Route: 048
     Dates: start: 20070101, end: 20100825
  7. SEROQUEL [Suspect]
     Route: 048
     Dates: start: 20100826
  8. SEROQUEL [Suspect]
     Route: 048
     Dates: start: 20100826
  9. SEROQUEL [Suspect]
     Route: 048
     Dates: start: 20080101
  10. LORTAB [Concomitant]
     Indication: NECK PAIN
     Dosage: 7.5/500 MG
  11. SEROQUEL [Suspect]
     Route: 048
     Dates: start: 20080101
  12. LORTAB [Concomitant]
     Indication: MIGRAINE PROPHYLAXIS
     Dosage: 7.5/500 MG
  13. LORTAB [Concomitant]
     Indication: FIBROMYALGIA
     Dosage: 7.5/500 MG
  14. SEROQUEL [Suspect]
     Indication: BIPOLAR DISORDER
     Route: 048
     Dates: start: 20070101, end: 20100825
  15. SEROQUEL [Suspect]
     Route: 048
     Dates: start: 20080101
  16. ZOCOR [Concomitant]
     Indication: HYPERLIPIDAEMIA
  17. XANAX [Concomitant]
     Indication: PANIC ATTACK
     Route: 048
  18. SEROQUEL [Suspect]
     Indication: BIPOLAR I DISORDER
     Route: 048
     Dates: start: 20070101, end: 20100825
  19. SEROQUEL [Suspect]
     Route: 048
     Dates: start: 20100826
  20. SEROQUEL [Suspect]
     Route: 048
     Dates: start: 20100826
  21. SEROQUEL [Suspect]
     Route: 048
     Dates: start: 20080101
  22. SEASONIQUE [Concomitant]
     Indication: CONTRACEPTION
  23. ATENOLOL [Concomitant]
     Indication: MIGRAINE PROPHYLAXIS
     Dosage: DAILY
     Route: 048
  24. XANAX [Concomitant]
     Indication: ANXIETY
     Route: 048
  25. SOMA [Concomitant]
     Indication: NECK PAIN
  26. SEASON BIRTH CONTROL PILL [Concomitant]
     Indication: DYSMENORRHOEA
  27. PHENTERMINE [Concomitant]
     Indication: OBESITY

REACTIONS (11)
  - DIABETES MELLITUS [None]
  - THERAPEUTIC RESPONSE UNEXPECTED [None]
  - INCREASED APPETITE [None]
  - WEIGHT DECREASED [None]
  - SOMNOLENCE [None]
  - BLOOD GLUCOSE DECREASED [None]
  - MIDDLE INSOMNIA [None]
  - INSOMNIA [None]
  - VISION BLURRED [None]
  - WEIGHT INCREASED [None]
  - INTENTIONAL DRUG MISUSE [None]
